FAERS Safety Report 6878726-X (Version None)
Quarter: 2010Q3

REPORT INFORMATION
  Report Type: 
  Country: None (occurrence: None)
  Receive Date: 20100728
  Receipt Date: 20100719
  Transmission Date: 20110219
  Serious: Yes (Other)
  Sender: FDA-Public Use
  Company Number: GXKR2010SG08035

PATIENT
  Age: 83 Year
  Sex: Female

DRUGS (2)
  1. ALENDRONIC ACID (NGX) [Suspect]
     Route: 065
  2. PREDNISOLONE [Concomitant]

REACTIONS (3)
  - BONE OPERATION [None]
  - MUSCULOSKELETAL PAIN [None]
  - STRESS FRACTURE [None]
